FAERS Safety Report 18262912 (Version 1)
Quarter: 2020Q3

REPORT INFORMATION
  Report Type: Spontaneous
  Country: US (occurrence: US)
  Receive Date: 20200914
  Receipt Date: 20200914
  Transmission Date: 20201103
  Serious: Yes (Other)
  Sender: FDA-Public Use
  Company Number: None

PATIENT
  Sex: Female
  Weight: 47.25 kg

DRUGS (3)
  1. ERYTHROMYCIN. [Suspect]
     Active Substance: ERYTHROMYCIN
     Indication: INFECTION
     Dosage: ?          QUANTITY:1 APPLICATION;OTHER FREQUENCY:BOTH EYES BEDTIME;?
  2. TRAVATAN [Concomitant]
     Active Substance: TRAVOPROST
  3. VITAMIN D [Concomitant]
     Active Substance: VITAMIN D NOS

REACTIONS (4)
  - Dyspnoea [None]
  - Wheezing [None]
  - Thermal burns of eye [None]
  - Blister [None]
